FAERS Safety Report 8911461 (Version 1)
Quarter: 2012Q4

REPORT INFORMATION
  Report Type: 
  Country: US (occurrence: US)
  Receive Date: 20121116
  Receipt Date: 20121116
  Transmission Date: 20130627
  Serious: Yes (Other)
  Sender: FDA-Public Use
  Company Number: US-PFIZER INC-2012285912

PATIENT
  Age: 66 Year
  Sex: Female
  Weight: 92.52 kg

DRUGS (2)
  1. LYRICA [Suspect]
     Indication: PAINFUL FEET
     Dosage: 75 mg, daily
     Dates: start: 201210, end: 201211
  2. LOSARTAN [Concomitant]
     Indication: BLOOD PRESSURE ABNORMAL
     Dosage: ^100/12^ daily

REACTIONS (2)
  - Suicidal ideation [Recovering/Resolving]
  - Malaise [Recovering/Resolving]
